FAERS Safety Report 4706945-7 (Version None)
Quarter: 2005Q3

REPORT INFORMATION
  Report Type: 
  Country: None (occurrence: None)
  Receive Date: 20050706
  Receipt Date: 20050623
  Transmission Date: 20060218
  Serious: Yes (Hospitalization)
  Sender: FDA-Public Use
  Company Number: DE-BOEHRINGER INGELHEIM PHARMACEUTICALS, INC.-2005-DE-02434DE

PATIENT
  Sex: Female

DRUGS (1)
  1. SIFROL 0,18 MG [Suspect]
     Route: 048

REACTIONS (4)
  - ALCOHOL USE [None]
  - DRUG ABUSER [None]
  - OVERDOSE [None]
  - SUICIDE ATTEMPT [None]
